FAERS Safety Report 7540605-2 (Version None)
Quarter: 2011Q2

REPORT INFORMATION
  Report Type: 
  Country: None (occurrence: None)
  Receive Date: 20110610
  Receipt Date: 20110607
  Transmission Date: 20111010
  Serious: Yes (Other)
  Sender: FDA-Public Use
  Company Number: US-PFIZER INC-2011070829

PATIENT
  Sex: Female

DRUGS (3)
  1. SUTENT [Suspect]
     Dosage: 25 MG, DAILY X 28 DAYS EVERY 42 DAYS
     Dates: start: 20110406
  2. SUTENT [Suspect]
     Indication: METASTATIC RENAL CELL CARCINOMA
     Dosage: 50 MG, 1X/DAY X 28 DAYS EVERY 42 DAYS
     Dates: start: 20110131, end: 20110214
  3. SUTENT [Suspect]
     Dosage: 50 MG, DAILY X 28 DAYS EVERY 42 DAYS
     Dates: start: 20110228, end: 20110314

REACTIONS (4)
  - OEDEMA PERIPHERAL [None]
  - GOUT [None]
  - AMNESIA [None]
  - BLOOD PRESSURE INCREASED [None]
